FAERS Safety Report 9464734 (Version 3)
Quarter: 2013Q4

REPORT INFORMATION
  Report Type: Spontaneous
  Country: US (occurrence: US)
  Receive Date: 20130819
  Receipt Date: 20131016
  Transmission Date: 20140711
  Serious: Yes (Death, Other)
  Sender: FDA-Public Use
  Company Number: US-GLAXOSMITHKLINE-A1037697A

PATIENT
  Age: 61 Year
  Sex: Male
  Weight: 71.8 kg

DRUGS (1)
  1. VOTRIENT [Suspect]
     Indication: METASTASIS
     Dosage: 800MG PER DAY
     Route: 048
     Dates: start: 20130726, end: 20130806

REACTIONS (3)
  - Jaundice [Unknown]
  - Bile duct obstruction [Unknown]
  - Death [Fatal]
